FAERS Safety Report 7313165-9 (Version None)
Quarter: 2011Q1

REPORT INFORMATION
  Report Type: 
  Country: None (occurrence: None)
  Receive Date: 20110215
  Receipt Date: 20110215
  Transmission Date: 20110831
  Serious: Yes (Hospitalization)
  Sender: FDA-Public Use
  Company Number: None

PATIENT
  Age: 75 Year
  Sex: Female
  Weight: 124 kg

DRUGS (13)
  1. COUMADIN [Suspect]
     Indication: ATRIAL FIBRILLATION
     Dosage: 2.5 MG SMTTHS PO ; 5MG WF PO
     Route: 048
  2. ACETAMINOPHEN [Concomitant]
  3. METOPROLOL [Concomitant]
  4. LASIX [Concomitant]
  5. POTASSIUM CHLORIDE [Concomitant]
  6. PILOCCRPINE [Concomitant]
  7. COSOPT [Concomitant]
  8. VIT B [Concomitant]
  9. BACTRIM DS [Concomitant]
  10. TRAVATAN [Concomitant]
  11. ULERIC [Concomitant]
  12. CARDURA [Concomitant]
  13. AVAPRO [Concomitant]

REACTIONS (4)
  - COAGULOPATHY [None]
  - COUGH [None]
  - ACUTE SINUSITIS [None]
  - MUSCLE HAEMORRHAGE [None]
